FAERS Safety Report 5491964-6 (Version None)
Quarter: 2007Q4

REPORT INFORMATION
  Report Type: 
  Country: None (occurrence: None)
  Receive Date: 20071022
  Receipt Date: 20071018
  Transmission Date: 20080405
  Serious: Yes (Other)
  Sender: FDA-Public Use
  Company Number: A0656854A

PATIENT
  Age: 45 Year
  Sex: Male
  Weight: 83.2 kg

DRUGS (10)
  1. AVANDIA [Suspect]
     Dosage: 4MG PER DAY
     Route: 048
     Dates: start: 20040101, end: 20070524
  2. DIOVAN [Concomitant]
  3. HYDROCHLOROTHIAZIDE [Concomitant]
  4. CELEXA [Concomitant]
  5. ZOCOR [Concomitant]
  6. PREVACID [Concomitant]
  7. SINGULAIR [Concomitant]
  8. NORVASC [Concomitant]
     Dates: end: 20070101
  9. LIPITOR [Concomitant]
     Dates: end: 20070101
  10. CADUET [Concomitant]
     Dates: start: 20070101

REACTIONS (15)
  - CARDIAC MURMUR [None]
  - CARDIOVASCULAR DISORDER [None]
  - CHEST PAIN [None]
  - DILATATION ATRIAL [None]
  - EYE PAIN [None]
  - GLAUCOMA [None]
  - HYPOGLYCAEMIA [None]
  - ILL-DEFINED DISORDER [None]
  - MALAISE [None]
  - MITRAL VALVE INCOMPETENCE [None]
  - MUSCULOSKELETAL CHEST PAIN [None]
  - RETINAL SCAR [None]
  - VISION BLURRED [None]
  - VISUAL ACUITY REDUCED [None]
  - VITREOUS FLOATERS [None]
